FAERS Safety Report 10597591 (Version 1)
Quarter: 2014Q4

REPORT INFORMATION
  Report Type: Spontaneous
  Country: US (occurrence: US)
  Receive Date: 20141121
  Receipt Date: 20141121
  Transmission Date: 20150529
  Serious: No
  Sender: FDA-Public Use
  Company Number: US-009507513-1411USA004943

PATIENT
  Sex: Female
  Weight: 97.96 kg

DRUGS (1)
  1. NEXPLANON [Suspect]
     Active Substance: ETONOGESTREL
     Indication: CONTRACEPTION
     Dosage: 1 DF, UNK (FREQUENCY: 1 ROD/3 YEARS)
     Route: 059
     Dates: start: 20140508, end: 20140711

REACTIONS (4)
  - Device breakage [Recovering/Resolving]
  - Metrorrhagia [Recovering/Resolving]
  - Product quality issue [Unknown]
  - Implant site pain [Recovering/Resolving]

NARRATIVE: CASE EVENT DATE: 2014
